FAERS Safety Report 17717652 (Version 1)
Quarter: 2020Q2

REPORT INFORMATION
  Report Type: Spontaneous
  Country: US (occurrence: US)
  Receive Date: 20200427
  Receipt Date: 20200427
  Transmission Date: 20200714
  Serious: Yes (Disabling)
  Sender: FDA-Public Use
  Company Number: None

PATIENT
  Age: 66 Year
  Sex: Female
  Weight: 74.25 kg

DRUGS (1)
  1. EMGALITY [Suspect]
     Active Substance: GALCANEZUMAB-GNLM
     Indication: MIGRAINE
     Dosage: ?          QUANTITY:1 INJECTION(S);OTHER FREQUENCY:ONCE EVERY 30 DAYS;?
     Route: 058
     Dates: start: 20191207, end: 20200406

REACTIONS (7)
  - Constipation [None]
  - Pruritus [None]
  - Insomnia [None]
  - Abdominal distension [None]
  - Anxiety [None]
  - Weight increased [None]
  - Depression [None]

NARRATIVE: CASE EVENT DATE: 20200425
